FAERS Safety Report 17889785 (Version 1)
Quarter: 2020Q2

REPORT INFORMATION
  Report Type: Spontaneous
  Country: US (occurrence: US)
  Receive Date: 20200612
  Receipt Date: 20200612
  Transmission Date: 20200714
  Serious: Yes (Other)
  Sender: FDA-Public Use
  Company Number: None

PATIENT
  Age: 41 Year
  Sex: Male
  Weight: 81.6 kg

DRUGS (2)
  1. REMDESIVIR. [Suspect]
     Active Substance: REMDESIVIR
     Indication: COVID-19
     Route: 041
  2. ACETAMINOPHEN. [Concomitant]
     Active Substance: ACETAMINOPHEN
     Dates: start: 20200609

REACTIONS (6)
  - Hypertension [None]
  - Chills [None]
  - Dyspnoea [None]
  - Alanine aminotransferase increased [None]
  - Aspartate aminotransferase increased [None]
  - Oxygen saturation decreased [None]

NARRATIVE: CASE EVENT DATE: 20200610
